FAERS Safety Report 18308486 (Version 9)
Quarter: 2022Q1

REPORT INFORMATION
  Report Type: Report from Study
  Country: JP (occurrence: JP)
  Receive Date: 20200924
  Receipt Date: 20220118
  Transmission Date: 20220423
  Serious: Yes (Death, Hospitalization)
  Sender: FDA-Public Use
  Company Number: JP-CELGENE-JPN-20191107065

PATIENT
  Age: 78 Year
  Sex: Male
  Weight: 67 kg

DRUGS (95)
  1. AZACITIDINE [Suspect]
     Active Substance: AZACITIDINE
     Indication: Angioimmunoblastic T-cell lymphoma
     Route: 048
     Dates: start: 20190719, end: 20190801
  2. AZACITIDINE [Suspect]
     Active Substance: AZACITIDINE
     Route: 048
     Dates: start: 20191114, end: 20191119
  3. AZACITIDINE [Suspect]
     Active Substance: AZACITIDINE
     Dosage: UNKNOWN
     Route: 048
     Dates: start: 20191120, end: 20200918
  4. AZACITIDINE [Suspect]
     Active Substance: AZACITIDINE
     Route: 048
     Dates: start: 20200925
  5. AZACITIDINE [Suspect]
     Active Substance: AZACITIDINE
     Route: 048
     Dates: start: 20210409, end: 20210422
  6. PREDNISOLONE [Concomitant]
     Active Substance: PREDNISOLONE
     Indication: Angioimmunoblastic T-cell lymphoma
     Dosage: UNKNOWN
     Route: 065
     Dates: start: 20170208, end: 20170609
  7. PREDNISOLONE [Concomitant]
     Active Substance: PREDNISOLONE
     Dosage: 10 MILLIGRAM
     Route: 048
     Dates: start: 20180802
  8. PREDNISOLONE [Concomitant]
     Active Substance: PREDNISOLONE
     Dosage: UNKNOWN
     Route: 048
     Dates: start: 20210507, end: 20210601
  9. SULFAMETHOXAZOLE\TRIMETHOPRIM [Concomitant]
     Active Substance: SULFAMETHOXAZOLE\TRIMETHOPRIM
     Indication: Infection prophylaxis
     Dosage: 0.5 TABLET
     Route: 048
     Dates: start: 20190122
  10. ALFACALCIDOL [Concomitant]
     Active Substance: ALFACALCIDOL
     Indication: Osteoporosis prophylaxis
     Dosage: 0.5 MICROGRAM
     Route: 048
     Dates: start: 20181227
  11. ASPIRIN [Concomitant]
     Active Substance: ASPIRIN
     Indication: Carotid artery stenosis
     Dosage: 100 MILLIGRAM
     Route: 048
     Dates: start: 2011
  12. CANDESARTAN CILEXETIL [Concomitant]
     Active Substance: CANDESARTAN CILEXETIL
     Indication: Carotid artery stenosis
     Dosage: 4 MILLIGRAM
     Route: 048
     Dates: start: 2011, end: 20190722
  13. HYDROCORTISONE BUTYRATE [Concomitant]
     Active Substance: HYDROCORTISONE BUTYRATE
     Indication: Pruritus
     Dosage: 1 APPLICATION
     Route: 061
     Dates: start: 20190125, end: 20190803
  14. LOPERAMIDE HYDROCHLORIDE [Concomitant]
     Active Substance: LOPERAMIDE HYDROCHLORIDE
     Indication: Diarrhoea
     Dosage: 2 MILLIGRAM
     Route: 048
     Dates: start: 20190719, end: 20190719
  15. LOPERAMIDE HYDROCHLORIDE [Concomitant]
     Active Substance: LOPERAMIDE HYDROCHLORIDE
     Indication: Prophylaxis against diarrhoea
     Dosage: 2 MILLIGRAM
     Route: 048
     Dates: start: 20190720, end: 20190724
  16. GRANISETRON HYDROCHLORIDE [Concomitant]
     Active Substance: GRANISETRON HYDROCHLORIDE
     Indication: Vomiting
     Dosage: 1 MILLIGRAM
     Route: 041
     Dates: start: 20190719, end: 20190719
  17. GRANISETRON HYDROCHLORIDE [Concomitant]
     Active Substance: GRANISETRON HYDROCHLORIDE
     Indication: Prophylaxis of nausea and vomiting
     Dosage: 1 MILLIGRAM
     Route: 048
     Dates: start: 20190722
  18. DEXTROSE\POTASSIUM CHLORIDE\SODIUM CHLORIDE\SODIUM LACTATE [Concomitant]
     Active Substance: DEXTROSE\POTASSIUM CHLORIDE\SODIUM CHLORIDE\SODIUM LACTATE
     Indication: Prophylaxis against dehydration
     Dosage: 1000 MILLILITER
     Route: 041
     Dates: start: 20190719, end: 20190723
  19. METOCLOPRAMIDE HYDROCHLORIDE [Concomitant]
     Active Substance: METOCLOPRAMIDE HYDROCHLORIDE
     Indication: Vomiting
     Dosage: 10 MILLIGRAM
     Route: 041
     Dates: start: 20190719, end: 20190719
  20. HYDROXYZINE HYDROCHLORIDE [Concomitant]
     Active Substance: HYDROXYZINE HYDROCHLORIDE
     Indication: Vomiting
     Dosage: 25 MILLIGRAM
     Route: 041
     Dates: start: 20190719, end: 20190719
  21. MAGNESIUM OXIDE [Concomitant]
     Active Substance: MAGNESIUM OXIDE
     Indication: Constipation
     Dosage: UNKNOWN
     Route: 065
     Dates: start: 20190726
  22. GLYCERIN [Concomitant]
     Active Substance: GLYCERIN
     Indication: Constipation
     Dosage: UNKNOWN
     Route: 065
     Dates: start: 20190727, end: 20190727
  23. FEBUXOSTAT [Concomitant]
     Active Substance: FEBUXOSTAT
     Indication: Hyperuricaemia
     Dosage: UNKNOWN
     Route: 065
     Dates: start: 20190729
  24. FLUCONAZOLE [Concomitant]
     Active Substance: FLUCONAZOLE
     Indication: Tinea infection
     Dosage: UNKNOWN
     Route: 065
     Dates: start: 20190829, end: 20190925
  25. LUBIPROSTONE [Concomitant]
     Active Substance: LUBIPROSTONE
     Indication: Constipation
     Dosage: UNKNOWN
     Route: 065
     Dates: start: 20190911, end: 20200819
  26. LUBIPROSTONE [Concomitant]
     Active Substance: LUBIPROSTONE
     Dosage: UNKNOWN
     Route: 065
     Dates: start: 20200922
  27. LULICONAZOLE [Concomitant]
     Active Substance: LULICONAZOLE
     Indication: Tinea infection
     Dosage: UNKNOWN
     Route: 065
     Dates: start: 20190911, end: 20200325
  28. LULICONAZOLE [Concomitant]
     Active Substance: LULICONAZOLE
     Indication: Tinea pedis
     Dosage: UNKNOWN
     Route: 065
     Dates: start: 20190911
  29. SENNOSIDES A AND B [Concomitant]
     Active Substance: SENNOSIDES A AND B
     Indication: Constipation
     Dosage: UNKNOWN
     Route: 065
     Dates: start: 20190822, end: 20200429
  30. OFLOXACIN [Concomitant]
     Active Substance: OFLOXACIN
     Indication: Diffuse large B-cell lymphoma
     Dosage: UNKNOWN
     Route: 065
     Dates: start: 20190830, end: 20190917
  31. OFLOXACIN [Concomitant]
     Active Substance: OFLOXACIN
     Indication: Biopsy eyelid
     Dosage: UNKNOWN
     Route: 065
     Dates: start: 20191111, end: 20191111
  32. CEFACLOR [Concomitant]
     Active Substance: CEFACLOR
     Indication: Diffuse large B-cell lymphoma
     Dosage: UNKNOWN
     Route: 065
     Dates: start: 20190830, end: 20190905
  33. ATORVASTATIN CALCIUM [Concomitant]
     Active Substance: ATORVASTATIN CALCIUM
     Indication: Prophylaxis
     Dosage: UNKNOWN
     Route: 065
     Dates: start: 20191001
  34. CLOPIDOGREL BISULFATE [Concomitant]
     Active Substance: CLOPIDOGREL BISULFATE
     Indication: Prophylaxis
     Dosage: UNKNOWN
     Route: 065
     Dates: start: 20191001
  35. RABEPRAZOLE [Concomitant]
     Active Substance: RABEPRAZOLE
     Indication: Prophylaxis
     Dosage: UNKNOWN
     Route: 065
     Dates: start: 20191001
  36. DIFLUPREDNATE [Concomitant]
     Active Substance: DIFLUPREDNATE
     Indication: Rash
     Dosage: UNKNOWN
     Route: 065
     Dates: start: 20191016, end: 20201021
  37. LACTULOSE [Concomitant]
     Active Substance: LACTULOSE
     Indication: Constipation
     Dosage: UNKNOWN
     Route: 065
     Dates: start: 20200107, end: 20200120
  38. BIOTIN [Concomitant]
     Active Substance: BIOTIN
     Indication: Tinea pedis
     Dosage: UNKNOWN
     Route: 065
     Dates: start: 20191218, end: 20200121
  39. DEXCHLORPHENIRAMINE MALEATE [Concomitant]
     Active Substance: DEXCHLORPHENIRAMINE MALEATE
     Indication: Prophylaxis
     Dosage: UNKNOWN
     Route: 065
     Dates: start: 20191210, end: 20191210
  40. DEXCHLORPHENIRAMINE MALEATE [Concomitant]
     Active Substance: DEXCHLORPHENIRAMINE MALEATE
     Indication: Infusion related reaction
     Dosage: UNKNOWN
     Route: 065
     Dates: start: 20200918, end: 20200918
  41. DEXCHLORPHENIRAMINE MALEATE [Concomitant]
     Active Substance: DEXCHLORPHENIRAMINE MALEATE
     Dosage: UNKNOWN
     Route: 065
     Dates: start: 20200923, end: 20200923
  42. DEXCHLORPHENIRAMINE MALEATE [Concomitant]
     Active Substance: DEXCHLORPHENIRAMINE MALEATE
     Dosage: UNKNOWN
     Route: 065
     Dates: start: 20201009, end: 20201009
  43. DEXCHLORPHENIRAMINE MALEATE [Concomitant]
     Active Substance: DEXCHLORPHENIRAMINE MALEATE
     Dosage: UNKNOWN
     Route: 065
     Dates: start: 20201022, end: 20201022
  44. DEXCHLORPHENIRAMINE MALEATE [Concomitant]
     Active Substance: DEXCHLORPHENIRAMINE MALEATE
     Dosage: UNKNOWN
     Route: 065
     Dates: start: 20201216, end: 20201216
  45. DEXCHLORPHENIRAMINE MALEATE [Concomitant]
     Active Substance: DEXCHLORPHENIRAMINE MALEATE
     Dosage: UNKNOWN
     Route: 065
     Dates: start: 20210210, end: 20210210
  46. ACETAMINOPHEN [Concomitant]
     Active Substance: ACETAMINOPHEN
     Indication: Prophylaxis
     Dosage: UNKNOWN
     Route: 065
     Dates: start: 20191210, end: 20191210
  47. ACETAMINOPHEN [Concomitant]
     Active Substance: ACETAMINOPHEN
     Dosage: UNKNOWN
     Route: 065
     Dates: start: 20200918, end: 20200918
  48. ACETAMINOPHEN [Concomitant]
     Active Substance: ACETAMINOPHEN
     Dosage: UNKNOWN
     Route: 065
     Dates: start: 20200923, end: 20200923
  49. ACETAMINOPHEN [Concomitant]
     Active Substance: ACETAMINOPHEN
     Dosage: UNKNOWN
     Route: 065
     Dates: start: 20201009, end: 20201009
  50. ACETAMINOPHEN [Concomitant]
     Active Substance: ACETAMINOPHEN
     Dosage: UNKNOWN
     Route: 065
     Dates: start: 20201022, end: 20201022
  51. ACETAMINOPHEN [Concomitant]
     Active Substance: ACETAMINOPHEN
     Dosage: UNKNOWN
     Route: 065
     Dates: start: 20201216, end: 20201216
  52. ACETAMINOPHEN [Concomitant]
     Active Substance: ACETAMINOPHEN
     Dosage: UNKNOWN
     Route: 065
     Dates: start: 20210210, end: 20210210
  53. LIDOCAINE [Concomitant]
     Active Substance: LIDOCAINE
     Indication: Biopsy eyelid
     Dosage: UNKNOWN
     Route: 065
     Dates: start: 20191111, end: 20191111
  54. LIDOCAINE [Concomitant]
     Active Substance: LIDOCAINE
     Indication: Bone marrow disorder
     Dosage: UNKNOWN
     Route: 065
     Dates: start: 20210506, end: 20210506
  55. HERBALS [Concomitant]
     Active Substance: HERBALS
     Indication: Muscle spasms
     Dosage: UNKNOWN
     Route: 065
     Dates: start: 20200430, end: 20200527
  56. HERBALS [Concomitant]
     Active Substance: HERBALS
     Dosage: UNKNOWN
     Route: 065
     Dates: start: 20201022
  57. FUDOSTEINE [Concomitant]
     Active Substance: FUDOSTEINE
     Indication: Prophylaxis
     Dosage: UNKNOWN
     Route: 065
     Dates: start: 20200430
  58. BROTIZOLAM [Concomitant]
     Active Substance: BROTIZOLAM
     Indication: Insomnia
     Dosage: UNKNOWN
     Route: 065
     Dates: start: 20200722
  59. SOLDEM 3A [Concomitant]
     Active Substance: CARBOHYDRATES\POTASSIUM CHLORIDE\SODIUM CHLORIDE\SODIUM LACTATE
     Indication: Prophylaxis
     Dosage: UNKNOWN
     Route: 065
     Dates: start: 20200901, end: 20200901
  60. SOLDEM 3A [Concomitant]
     Active Substance: CARBOHYDRATES\POTASSIUM CHLORIDE\SODIUM CHLORIDE\SODIUM LACTATE
     Dosage: UNKNOWN
     Route: 065
     Dates: start: 20200919, end: 20200923
  61. RITUXIMAB [Concomitant]
     Active Substance: RITUXIMAB
     Indication: Epstein-Barr virus infection
     Dosage: UNKNOWN
     Route: 065
     Dates: start: 20191210, end: 20191210
  62. RITUXIMAB [Concomitant]
     Active Substance: RITUXIMAB
     Dosage: UNKNOWN
     Route: 065
     Dates: start: 20200918, end: 20200918
  63. RITUXIMAB [Concomitant]
     Active Substance: RITUXIMAB
     Dosage: UNKNOWN
     Route: 065
     Dates: start: 20200923, end: 20200923
  64. RITUXIMAB [Concomitant]
     Active Substance: RITUXIMAB
     Dosage: UNKNOWN
     Route: 065
     Dates: start: 20201009, end: 20201009
  65. RITUXIMAB [Concomitant]
     Active Substance: RITUXIMAB
     Dosage: UNKNOWN
     Route: 065
     Dates: start: 20201022, end: 20201022
  66. RITUXIMAB [Concomitant]
     Active Substance: RITUXIMAB
     Dosage: UNKNOWN
     Route: 065
     Dates: start: 20201216, end: 20201216
  67. RITUXIMAB [Concomitant]
     Active Substance: RITUXIMAB
     Dosage: UNKNOWN
     Route: 065
     Dates: start: 20210210, end: 20210210
  68. CLONAZEPAM [Concomitant]
     Active Substance: CLONAZEPAM
     Indication: Hiccups
     Dosage: UNKNOWN
     Route: 065
     Dates: start: 20200922, end: 20200922
  69. HYDROCORTISONE SODIUM SUCCINATE [Concomitant]
     Active Substance: HYDROCORTISONE SODIUM SUCCINATE
     Indication: Infusion related reaction
     Dosage: UNKNOWN
     Route: 065
     Dates: start: 20191210, end: 20191210
  70. HYDROCORTISONE SODIUM SUCCINATE [Concomitant]
     Active Substance: HYDROCORTISONE SODIUM SUCCINATE
     Dosage: UNKNOWN
     Route: 065
     Dates: start: 20200918, end: 20200918
  71. CEFAZOLIN SODIUM [Concomitant]
     Active Substance: CEFAZOLIN SODIUM
     Indication: Biopsy eyelid
     Dosage: UNKNOWN
     Route: 065
     Dates: start: 20191111, end: 20191111
  72. IODINE [Concomitant]
     Active Substance: IODINE
     Indication: Biopsy eyelid
     Dosage: UNKNOWN
     Route: 065
     Dates: start: 20191111, end: 20191111
  73. POLYVINYL ALCOHOL [Concomitant]
     Active Substance: POLYVINYL ALCOHOL
     Indication: Biopsy eyelid
     Dosage: UNKNOWN
     Route: 065
     Dates: start: 20191111, end: 20191111
  74. BETAMETHASONE SODIUM PHOSPHATE [Concomitant]
     Active Substance: BETAMETHASONE SODIUM PHOSPHATE
     Indication: Biopsy eyelid
     Dosage: UNKNOWN
     Route: 065
     Dates: start: 20191111, end: 20191111
  75. FRADIOMYCIN SULFATE [Concomitant]
     Indication: Biopsy eyelid
     Dosage: UNKNOWN
     Route: 065
     Dates: start: 20191111, end: 20191111
  76. EPINEPHRINE [Concomitant]
     Active Substance: EPINEPHRINE
     Indication: Biopsy eyelid
     Dosage: UNKNOWN
     Route: 065
     Dates: start: 20191111, end: 20191111
  77. BENOXINATE HYDROCHLORIDE [Concomitant]
     Active Substance: BENOXINATE HYDROCHLORIDE
     Indication: Biopsy eyelid
     Dosage: UNKNOWN
     Route: 065
     Dates: start: 20191111, end: 20191111
  78. CALCIUM CHLORIDE\POTASSIUM CHLORIDE\SODIUM ACETATE\SODIUM CHLORIDE [Concomitant]
     Active Substance: CALCIUM CHLORIDE\POTASSIUM CHLORIDE\SODIUM ACETATE\SODIUM CHLORIDE
     Indication: Biopsy eyelid
     Dosage: UNKNOWN
     Route: 065
     Dates: start: 20191111, end: 20191111
  79. INFLUENZA VIRUS VACCINE [Concomitant]
     Active Substance: INFLUENZA VIRUS VACCINE
     Indication: Prophylaxis
     Dosage: UNKNOWN
     Route: 065
     Dates: start: 20201119, end: 20201119
  80. Gatifloxacin hydrate [Concomitant]
     Indication: Premedication
     Dosage: UNKNOWN
     Route: 065
     Dates: start: 20191108, end: 20191111
  81. SODIUM FERROUS CITRATE [Concomitant]
     Active Substance: SODIUM FERROUS CITRATE
     Indication: Anaemia
     Dosage: UNKNOWN
     Route: 065
     Dates: start: 20210210, end: 20210311
  82. SODIUM FERROUS CITRATE [Concomitant]
     Active Substance: SODIUM FERROUS CITRATE
     Indication: Prophylaxis
     Dosage: UNKNOWN
     Route: 065
     Dates: start: 20210312, end: 20210507
  83. LEVOFLOXACIN HEMIHYDRATE [Concomitant]
     Active Substance: LEVOFLOXACIN
     Indication: Prophylaxis
     Dosage: UNKNOWN
     Route: 065
     Dates: start: 20210513
  84. BACLOFEN [Concomitant]
     Active Substance: BACLOFEN
     Indication: Hiccups
     Dosage: UNKNOWN
     Route: 065
     Dates: start: 20210510, end: 20210511
  85. POTASSIUM ASPARTATE ANHYDROUS [Concomitant]
     Active Substance: POTASSIUM ASPARTATE ANHYDROUS
     Indication: Hypokalaemia
     Dosage: UNKNOWN
     Route: 065
     Dates: start: 20210514, end: 20210517
  86. POTASSIUM ASPARTATE ANHYDROUS [Concomitant]
     Active Substance: POTASSIUM ASPARTATE ANHYDROUS
     Indication: Prophylaxis
     Dosage: UNKNOWN
     Route: 065
     Dates: start: 20210518, end: 20210521
  87. KETOPROFEN [Concomitant]
     Active Substance: KETOPROFEN
     Indication: Pain
     Dosage: UNKNOWN
     Route: 065
     Dates: start: 20210516
  88. FUROSEMIDE [Concomitant]
     Active Substance: FUROSEMIDE
     Indication: Prophylaxis
     Dosage: UNKNOWN
     Route: 065
     Dates: start: 20210509, end: 20210509
  89. FUROSEMIDE [Concomitant]
     Active Substance: FUROSEMIDE
     Dosage: UNKNOWN
     Route: 065
     Dates: start: 20210512, end: 20210512
  90. CEFEPIME HYDROCHLORIDE [Concomitant]
     Active Substance: CEFEPIME HYDROCHLORIDE
     Indication: Prophylaxis
     Dosage: UNKNOWN
     Route: 065
     Dates: start: 20210507, end: 20210523
  91. PALONOSETRON HYDROCHLORIDE [Concomitant]
     Active Substance: PALONOSETRON HYDROCHLORIDE
     Indication: Prophylaxis
     Dosage: UNKNOWN
     Route: 065
     Dates: start: 20210508, end: 20210508
  92. FOSAPREPITANT [Concomitant]
     Active Substance: FOSAPREPITANT
     Indication: Prophylaxis
     Dosage: UNKNOWN
     Route: 065
     Dates: start: 20210508, end: 20210508
  93. FILGRASTIM [Concomitant]
     Active Substance: FILGRASTIM
     Indication: Neutropenia
     Dosage: UNKNOWN
     Route: 065
     Dates: start: 20210517, end: 20210521
  94. DEXTROSE\SODIUM CHLORIDE\SODIUM LACTATE [Concomitant]
     Active Substance: DEXTROSE\SODIUM CHLORIDE\SODIUM LACTATE
     Indication: Prophylaxis
     Dosage: UNKNOWN
     Route: 065
     Dates: start: 20210509, end: 20210514
  95. DEXTROSE\SODIUM CHLORIDE\SODIUM LACTATE [Concomitant]
     Active Substance: DEXTROSE\SODIUM CHLORIDE\SODIUM LACTATE
     Dosage: UNKNOWN
     Route: 065
     Dates: start: 20210521, end: 20210524

REACTIONS (1)
  - Epstein-Barr virus associated lymphoproliferative disorder [Fatal]

NARRATIVE: CASE EVENT DATE: 20190722
